FAERS Safety Report 11498799 (Version 1)
Quarter: 2015Q3

REPORT INFORMATION
  Report Type: Spontaneous
  Country: IT (occurrence: IT)
  Receive Date: 20150912
  Receipt Date: 20150912
  Transmission Date: 20151125
  Serious: Yes (Death, Other)
  Sender: FDA-Public Use
  Company Number: IT-CIPLA LTD.-2015IT07169

PATIENT

DRUGS (4)
  1. IRINOTECAN [Suspect]
     Active Substance: IRINOTECAN
     Indication: COLORECTAL CANCER METASTATIC
     Dosage: 180 MG/M2, AS A 1-HOUR INFUSION ON DAY 1
  2. L-FOLINATE [Suspect]
     Active Substance: LEVOLEUCOVORIN
     Indication: COLORECTAL CANCER METASTATIC
     Dosage: 100 MG/M2, AS A 2-HOUR INFUSION ON DAYS 1 AND 2
  3. FLUOROURACIL. [Suspect]
     Active Substance: FLUOROURACIL
     Indication: COLORECTAL CANCER METASTATIC
     Dosage: 400 MG/M2, AS AN INTRAVENOUS BOLUS INJECTION ON DAYS 1 AND 2
     Route: 042
  4. FLUOROURACIL. [Suspect]
     Active Substance: FLUOROURACIL
     Dosage: 600 MG/M2, AS A 22-HOUR INFUSION ON DAYS 1 AND 2, IMMEDIATELY AFTER THE 5-FU BOLUS INJECTION

REACTIONS (2)
  - Disease progression [Fatal]
  - Adverse event [None]
